FAERS Safety Report 5695122-1 (Version None)
Quarter: 2008Q2

REPORT INFORMATION
  Report Type: 
  Country: None (occurrence: None)
  Receive Date: 20080404
  Receipt Date: 20080326
  Transmission Date: 20081010
  Serious: Yes (Death, Hospitalization)
  Sender: FDA-Public Use
  Company Number: FR-PFIZER INC-2008025472

PATIENT
  Sex: Male

DRUGS (6)
  1. CAMPTO [Suspect]
     Indication: COLORECTAL CANCER
     Route: 042
     Dates: start: 20041115, end: 20070525
  2. FOLINIC ACID [Concomitant]
  3. FLUOROURACIL [Concomitant]
  4. CETUXIMAB [Concomitant]
  5. BEVACIZUMAB [Concomitant]
  6. OXALIPLATIN [Concomitant]

REACTIONS (6)
  - ABDOMINAL PAIN [None]
  - ANAL FISTULA [None]
  - ANAL STENOSIS [None]
  - DIARRHOEA [None]
  - HEPATIC FAILURE [None]
  - HEPATIC STEATOSIS [None]
